FAERS Safety Report 8043648-8 (Version None)
Quarter: 2012Q1

REPORT INFORMATION
  Report Type: 
  Country: None (occurrence: None)
  Receive Date: 20120112
  Receipt Date: 20120103
  Transmission Date: 20120608
  Serious: Yes (Other)
  Sender: FDA-Public Use
  Company Number: FR-ASTRAZENECA-2012SE00780

PATIENT
  Age: 38 Year
  Sex: Female

DRUGS (4)
  1. CELESTONE [Concomitant]
     Route: 065
     Dates: start: 20111110
  2. TENORMIN [Suspect]
     Indication: HYPERTROPHIC CARDIOMYOPATHY
     Route: 048
  3. LOVENOX [Suspect]
     Indication: HYPERTROPHIC CARDIOMYOPATHY
     Route: 065
  4. CORDARONE [Suspect]
     Indication: HYPERTROPHIC CARDIOMYOPATHY
     Route: 065

REACTIONS (3)
  - PULMONARY HYPERTENSION [None]
  - LEFT VENTRICULAR FAILURE [None]
  - MATERNAL EXPOSURE DURING PREGNANCY [None]
